FAERS Safety Report 5970782-6 (Version None)
Quarter: 2008Q4

REPORT INFORMATION
  Report Type: 
  Country: None (occurrence: None)
  Receive Date: 20081126
  Receipt Date: 20081113
  Transmission Date: 20090506
  Serious: No
  Sender: FDA-Public Use
  Company Number: US-ABBOTT-08P-163-0487717-00

PATIENT
  Sex: Female
  Weight: 68.1 kg

DRUGS (6)
  1. SIMCOR [Suspect]
     Indication: BLOOD TRIGLYCERIDES INCREASED
     Route: 048
     Dates: start: 20080601
  2. OLMESARTAN MEDOXOMIL [Concomitant]
     Indication: BLOOD TRIGLYCERIDES INCREASED
  3. VITAMINS [Concomitant]
     Indication: ROUTINE HEALTH MAINTENANCE
  4. VITAMIN E [Concomitant]
     Indication: ROUTINE HEALTH MAINTENANCE
  5. CENTRUM SILVER [Concomitant]
     Indication: ROUTINE HEALTH MAINTENANCE
  6. SOMETHING FOR JOINTS [Concomitant]
     Indication: ARTHROPATHY

REACTIONS (2)
  - FEELING HOT [None]
  - INCREASED APPETITE [None]
